FAERS Safety Report 4418578-0 (Version None)
Quarter: 2004Q3

REPORT INFORMATION
  Report Type: 
  Country: None (occurrence: None)
  Receive Date: 20040809
  Receipt Date: 20020401
  Transmission Date: 20050211
  Serious: No
  Sender: FDA-Public Use
  Company Number: US-GLAXOSMITHKLINE-A0365780A

PATIENT
  Age: 52 Year
  Sex: Male

DRUGS (4)
  1. PAXIL [Suspect]
     Indication: SLEEP DISORDER
     Dosage: 10MG AT NIGHT
     Route: 048
  2. TYLENOL [Concomitant]
  3. ASPIRIN [Concomitant]
  4. NAPROXEN [Concomitant]

REACTIONS (18)
  - AMNESIA [None]
  - ASTHENIA [None]
  - CONSTIPATION [None]
  - DELUSION [None]
  - DEPRESSION [None]
  - DIZZINESS POSTURAL [None]
  - EAR PAIN [None]
  - EMOTIONAL DISORDER [None]
  - FLUSHING [None]
  - HYPERHIDROSIS [None]
  - MUSCLE CRAMP [None]
  - ORTHOSTATIC HYPOTENSION [None]
  - PARAESTHESIA [None]
  - PARANOIA [None]
  - PHOTOSENSITIVITY REACTION [None]
  - SOMNOLENCE [None]
  - TINNITUS [None]
  - WEIGHT INCREASED [None]
